FAERS Safety Report 7075684-2 (Version None)
Quarter: 2010Q4

REPORT INFORMATION
  Report Type: 
  Country: None (occurrence: None)
  Receive Date: 20101031
  Receipt Date: 20101021
  Transmission Date: 20110411
  Serious: Yes (Other)
  Sender: FDA-Public Use
  Company Number: JP-BRISTOL-MYERS SQUIBB COMPANY-15357353

PATIENT
  Age: 73 Year
  Sex: Female

DRUGS (4)
  1. ERBITUX [Suspect]
     Indication: RECTAL CANCER
     Dosage: RECENT INF:01SEP10 NO OF INF:2
     Route: 042
     Dates: start: 20100811
  2. IRINOTECAN HCL [Concomitant]
     Indication: RECTAL CANCER
     Route: 042
  3. FLUOROURACIL [Concomitant]
     Indication: RECTAL CANCER
     Dosage: IV DRIP, IV BOLUS
     Route: 042
  4. LEUCOVORIN CALCIUM [Concomitant]
     Indication: RECTAL CANCER
     Route: 042

REACTIONS (1)
  - BLOOD BILIRUBIN INCREASED [None]
